FAERS Safety Report 8338848-3 (Version None)
Quarter: 2012Q2

REPORT INFORMATION
  Report Type: 
  Country: None (occurrence: None)
  Receive Date: 20120504
  Receipt Date: 20120501
  Transmission Date: 20120825
  Serious: Yes (Hospitalization)
  Sender: FDA-Public Use
  Company Number: US-MERCK-1203USA01765

PATIENT
  Age: 54 Year
  Sex: Female

DRUGS (2)
  1. COZAAR [Suspect]
     Indication: HYPERTENSION
     Route: 048
     Dates: start: 20120101
  2. PRAVASTATIN SODIUM [Concomitant]
     Route: 065

REACTIONS (1)
  - RHABDOMYOLYSIS [None]
